FAERS Safety Report 18873028 (Version 5)
Quarter: 2021Q2

REPORT INFORMATION
  Report Type: Spontaneous
  Country: DE (occurrence: DE)
  Receive Date: 20210210
  Receipt Date: 20210414
  Transmission Date: 20210717
  Serious: Yes (Other)
  Sender: FDA-Public Use
  Company Number: DE-TAKEDA-2021TUS006724

PATIENT
  Age: 81 Year
  Sex: Male

DRUGS (1)
  1. 555 (PRUCALOPRIDE) [Suspect]
     Active Substance: PRUCALOPRIDE
     Indication: PRODUCT USED FOR UNKNOWN INDICATION
     Dosage: UNK
     Route: 065

REACTIONS (4)
  - Intestinal obstruction [Unknown]
  - Muscle spasms [Unknown]
  - Drug ineffective [Unknown]
  - Constipation [Unknown]
